FAERS Safety Report 9856380 (Version 2)
Quarter: 2014Q1

REPORT INFORMATION
  Report Type: Spontaneous
  Country: US (occurrence: US)
  Receive Date: 20140130
  Receipt Date: 20140313
  Transmission Date: 20141002
  Serious: Yes (Other)
  Sender: FDA-Public Use
  Company Number: US-PFIZER INC-2014028157

PATIENT
  Age: 54 Year
  Sex: Female
  Weight: 58.96 kg

DRUGS (2)
  1. CHANTIX [Suspect]
     Indication: SMOKING CESSATION THERAPY
     Dosage: 0.5 MG, 1X/DAY
     Dates: start: 201401, end: 201401
  2. CHANTIX [Suspect]
     Dosage: 1 MG, UNK
     Dates: start: 201401, end: 2014

REACTIONS (8)
  - Aggression [Unknown]
  - Tobacco user [Unknown]
  - Drooling [Unknown]
  - Abnormal dreams [Unknown]
  - Anxiety [Unknown]
  - Dry mouth [Unknown]
  - Chromaturia [Unknown]
  - Tooth disorder [Unknown]
